FAERS Safety Report 9689505 (Version 2)
Quarter: 2013Q4

REPORT INFORMATION
  Report Type: Spontaneous
  Country: US (occurrence: US)
  Receive Date: 20131114
  Receipt Date: 20131114
  Transmission Date: 20140711
  Serious: No
  Sender: FDA-Public Use
  Company Number: US-ASTRAZENECA-2012SE89214

PATIENT
  Age: 35 Year
  Sex: Male

DRUGS (12)
  1. SEROQUEL XR [Suspect]
     Indication: ANXIETY
     Route: 048
  2. SEROQUEL XR [Suspect]
     Indication: DEPRESSION
     Route: 048
  3. SEROQUEL XR [Suspect]
     Indication: BIPOLAR DISORDER
     Route: 048
  4. SEROQUEL XR [Suspect]
     Indication: INSOMNIA
     Route: 048
  5. SEROQUEL XR [Suspect]
     Indication: ANXIETY
     Route: 048
  6. SEROQUEL XR [Suspect]
     Indication: DEPRESSION
     Route: 048
  7. SEROQUEL XR [Suspect]
     Indication: BIPOLAR DISORDER
     Route: 048
  8. SEROQUEL XR [Suspect]
     Indication: INSOMNIA
     Route: 048
  9. ZOLOFT [Concomitant]
  10. NEURONTIN [Concomitant]
  11. MELOXICAM [Concomitant]
  12. TRAZADONE [Concomitant]

REACTIONS (10)
  - Agitation [Unknown]
  - Bipolar disorder [Unknown]
  - Adverse event [Unknown]
  - Insomnia [Unknown]
  - Anger [Unknown]
  - Mental disorder [Unknown]
  - Pain [Unknown]
  - Emotional disorder [Unknown]
  - Drug dose omission [Unknown]
  - Intentional drug misuse [Unknown]
